FAERS Safety Report 9297868 (Version 5)
Quarter: 2014Q2

REPORT INFORMATION
  Report Type: Spontaneous
  Country: US (occurrence: US)
  Receive Date: 20130520
  Receipt Date: 20140409
  Transmission Date: 20141212
  Serious: Yes (Hospitalization, Other)
  Sender: FDA-Public Use
  Company Number: US-PFIZER INC-2013154379

PATIENT
  Age: 66 Year
  Sex: Female
  Weight: 48.53 kg

DRUGS (17)
  1. LYRICA [Suspect]
     Indication: FIBROMYALGIA
     Dosage: 150 MG, 3X/DAY
     Route: 048
     Dates: start: 2009
  2. LYRICA [Suspect]
     Dosage: 150 MG, 2X/DAY
     Route: 048
  3. LYRICA [Suspect]
     Dosage: 150 MG, 3X/DAY
     Route: 048
  4. PRADAXA [Concomitant]
     Indication: ATRIAL FIBRILLATION
     Dosage: UNK
  5. SOTALOL [Concomitant]
     Indication: ATRIAL FIBRILLATION
     Dosage: 80 MG, 1X/DAY
  6. SOTALOL [Concomitant]
     Dosage: 80 MG, 2X/DAY
  7. METOPROLOL [Concomitant]
     Indication: ATRIAL FIBRILLATION
     Dosage: 22.5 MG (HALF TABLET OF 45MG), 2X/DAY
     Route: 048
     Dates: start: 201008
  8. METOPROLOL [Concomitant]
     Dosage: 50 MG, 2X/DAY
  9. PANTOPRAZOLE SOD [Concomitant]
     Indication: REFLUX GASTRITIS
     Dosage: 40 MG, (1 TABLET) 2X/DAY
  10. PANTOPRAZOLE SOD [Concomitant]
     Indication: CROHN^S DISEASE
  11. REPLAX [Concomitant]
     Dosage: 40 MG, AS NEEDED
  12. ESTRADIOL [Concomitant]
     Dosage: 0.25 MG, 1X/DAY
  13. PREDNISONE [Concomitant]
     Indication: CROHN^S DISEASE
     Dosage: 10 MG, 1X/DAY
  14. TRAMADOL HCL ER [Concomitant]
     Indication: SPINAL OPERATION
     Dosage: 50 MG, (1 TABLET) 4X/DAY IF NEEDED
  15. BENZONATATE [Concomitant]
     Indication: COUGH
     Dosage: 100 MG, AS NEEDED (EVERY 4 TO 6 HOURS)
  16. HYOSCYAMINE [Concomitant]
     Indication: ABDOMINAL PAIN UPPER
     Dosage: 0125 MG, (EVERY 4 HOURS IF NEEDED)
  17. ONDANSETRON HYDROCHLORIDE [Concomitant]
     Indication: NAUSEA
     Dosage: 4 MG, (EVERY 8 HOURS  AS NEEDED)

REACTIONS (13)
  - Spinal disorder [Unknown]
  - Spinal cord injury [Unknown]
  - Fall [Unknown]
  - Spinal fracture [Unknown]
  - Atrial fibrillation [Unknown]
  - Back disorder [Unknown]
  - Eye disorder [Unknown]
  - Intervertebral disc degeneration [Unknown]
  - Intervertebral disc protrusion [Unknown]
  - Blood sodium decreased [Unknown]
  - Weight decreased [Unknown]
  - Dysstasia [Unknown]
  - Pain [Unknown]
